FAERS Safety Report 8911799 (Version 1)
Quarter: 2012Q4

REPORT INFORMATION
  Report Type: 
  Country: GB (occurrence: GB)
  Receive Date: 20121116
  Receipt Date: 20121116
  Transmission Date: 20130627
  Serious: Yes (Other)
  Sender: FDA-Public Use
  Company Number: GB-PFIZER INC-2012282506

PATIENT
  Age: 58 Year
  Sex: Male
  Weight: 69.85 kg

DRUGS (7)
  1. SALAZOPYRIN [Suspect]
     Dosage: 500 mg, 2x/day
     Dates: start: 20120320
  2. SALAZOPYRIN [Suspect]
     Dosage: 1000 mg, 2x/day
     Dates: end: 20120405
  3. RAMIPRIL [Concomitant]
  4. CITALOPRAM [Concomitant]
  5. OMEPRAZOLE [Concomitant]
  6. CODEINE PHOSPHATE [Concomitant]
  7. VOLTAROL [Concomitant]
     Dosage: if required

REACTIONS (7)
  - Oral discomfort [Not Recovered/Not Resolved]
  - Gingival pain [Not Recovered/Not Resolved]
  - Hypoaesthesia [Not Recovered/Not Resolved]
  - Lip swelling [Not Recovered/Not Resolved]
  - Lip pain [Not Recovered/Not Resolved]
  - Lip ulceration [Not Recovered/Not Resolved]
  - Dysgeusia [Not Recovered/Not Resolved]
